FAERS Safety Report 6328163-1 (Version None)
Quarter: 2009Q3

REPORT INFORMATION
  Report Type: 
  Country: None (occurrence: None)
  Receive Date: 20090825
  Receipt Date: 20090126
  Transmission Date: 20100115
  Serious: No
  Sender: FDA-Public Use
  Company Number: US-ABBOTT-09P-163-0500192-00

PATIENT
  Sex: Male

DRUGS (1)
  1. SYNTHROID [Suspect]
     Indication: THYROIDECTOMY

REACTIONS (3)
  - ABDOMINAL DISCOMFORT [None]
  - HOT FLUSH [None]
  - WEIGHT INCREASED [None]
